FAERS Safety Report 13887113 (Version 1)
Quarter: 2017Q3

REPORT INFORMATION
  Report Type: Spontaneous
  Country: US (occurrence: US)
  Receive Date: 20170821
  Receipt Date: 20170821
  Transmission Date: 20171127
  Serious: No
  Sender: FDA-Public Use
  Company Number: US-ROCHE-1049036

PATIENT
  Age: 64 Year
  Sex: Female
  Weight: 65.83 kg

DRUGS (10)
  1. ASPIRIN. [Concomitant]
     Active Substance: ASPIRIN
  2. MULTIVITAMIN [Concomitant]
     Active Substance: VITAMINS
  3. RESTASIS [Concomitant]
     Active Substance: CYCLOSPORINE
  4. CALCIUM [Concomitant]
     Active Substance: CALCIUM
  5. DIOVAN [Concomitant]
     Active Substance: VALSARTAN
     Indication: HYPERTENSION
     Dosage: 50/12.5
     Route: 065
     Dates: start: 20030424
  6. REQUIP [Concomitant]
     Active Substance: ROPINIROLE HYDROCHLORIDE
     Route: 065
     Dates: start: 20120209
  7. LYRICA [Concomitant]
     Active Substance: PREGABALIN
     Route: 065
     Dates: start: 20120209
  8. CYMBALTA [Concomitant]
     Active Substance: DULOXETINE HYDROCHLORIDE
     Indication: PAIN
     Route: 065
     Dates: start: 20120209
  9. ACTEMRA [Suspect]
     Active Substance: TOCILIZUMAB
     Indication: RHEUMATOID ARTHRITIS
     Route: 042
     Dates: start: 20120307
  10. SALAGEN [Concomitant]
     Active Substance: PILOCARPINE HYDROCHLORIDE
     Route: 065
     Dates: start: 20120209

REACTIONS (3)
  - Peripheral swelling [Unknown]
  - Joint swelling [Unknown]
  - Diarrhoea [Unknown]

NARRATIVE: CASE EVENT DATE: 20120314
